FAERS Safety Report 10220637 (Version 1)
Quarter: 2014Q2

REPORT INFORMATION
  Report Type: Spontaneous
  Country: FR (occurrence: FR)
  Receive Date: 20140606
  Receipt Date: 20140606
  Transmission Date: 20141212
  Serious: Yes (Hospitalization)
  Sender: FDA-Public Use
  Company Number: FR-TEVA-484706ISR

PATIENT
  Age: 35 Year
  Sex: Female

DRUGS (1)
  1. PAMIDRONATE DE SODIUM RATIOPHARM 3MG/ML [Suspect]
     Dosage: 60 MILLIGRAM DAILY;
     Route: 041
     Dates: start: 20140421

REACTIONS (3)
  - Thrombophlebitis superficial [Recovering/Resolving]
  - Vena cava thrombosis [None]
  - Medical device complication [None]
